FAERS Safety Report 13468148 (Version 2)
Quarter: 2018Q4

REPORT INFORMATION
  Report Type: Spontaneous
  Country: US (occurrence: US)
  Receive Date: 20170421
  Receipt Date: 20181023
  Transmission Date: 20190204
  Serious: Yes (Other)
  Sender: FDA-Public Use
  Company Number: US-NAPPMUNDI-USA-2016-0135558

PATIENT
  Sex: Male

DRUGS (1)
  1. OXYCODONE HYDROCHLORIDE (SIMILAR TO NDA 22-272) [Suspect]
     Active Substance: OXYCODONE HYDROCHLORIDE
     Indication: EAR PAIN
     Dosage: UNK
     Route: 048

REACTIONS (12)
  - Hyperhidrosis [Unknown]
  - Drug tolerance increased [Unknown]
  - Confusional state [Unknown]
  - Drug ineffective [Unknown]
  - Influenza like illness [Unknown]
  - Vomiting [Unknown]
  - Drug dependence [Recovered/Resolved]
  - Pain [Unknown]
  - Nausea [Unknown]
  - Myalgia [Unknown]
  - Depression [Unknown]
  - Drug withdrawal syndrome [Unknown]
